FAERS Safety Report 17736688 (Version 1)
Quarter: 2020Q2

REPORT INFORMATION
  Report Type: Spontaneous
  Country: US (occurrence: US)
  Receive Date: 20200502
  Receipt Date: 20200502
  Transmission Date: 20200714
  Serious: Yes (Other)
  Sender: FDA-Public Use
  Company Number: US-TEVA-2020-US-1228847

PATIENT

DRUGS (3)
  1. VARAPIMIL [Suspect]
     Active Substance: VERAPAMIL HYDROCHLORIDE
     Route: 065
  2. AMLODIPINE [Concomitant]
     Active Substance: AMLODIPINE BESYLATE
  3. LOSARTANT [Concomitant]

REACTIONS (8)
  - Dyspnoea [Unknown]
  - Weight abnormal [Unknown]
  - Coronavirus infection [Unknown]
  - Early satiety [Unknown]
  - Peripheral swelling [Unknown]
  - Abdominal distension [Unknown]
  - Dizziness [Unknown]
  - Gait disturbance [Unknown]
